FAERS Safety Report 15196313 (Version 2)
Quarter: 2018Q3

REPORT INFORMATION
  Report Type: Spontaneous
  Country: JP (occurrence: JP)
  Receive Date: 20180725
  Receipt Date: 20180803
  Transmission Date: 20181010
  Serious: Yes (Other)
  Sender: FDA-Public Use
  Company Number: JP-PFIZER INC-2018296701

PATIENT
  Age: 32 Year
  Sex: Female
  Weight: 55.69 kg

DRUGS (8)
  1. CEFMETAZOLE SODIUM [Concomitant]
     Active Substance: CEFMETAZOLE SODIUM
     Indication: ANTIBIOTIC PROPHYLAXIS
     Dosage: 1000 MG, UNK
     Route: 041
     Dates: start: 20180503, end: 20180503
  2. MARCAIN /00330102/ [Concomitant]
     Indication: ANAESTHESIA
     Dosage: 2.4 ML, UNK
     Route: 037
     Dates: start: 20180503, end: 20180503
  3. ATONIN?O [Concomitant]
     Active Substance: OXYTOCIN
     Indication: UTERINE CONTRACTIONS DURING PREGNANCY
     Dosage: 10 IU, UNK
     Route: 041
     Dates: start: 20180503, end: 20180503
  4. PRECEDEX [Suspect]
     Active Substance: DEXMEDETOMIDINE HYDROCHLORIDE
     Indication: SEDATIVE THERAPY
     Dosage: UNK
     Route: 041
     Dates: start: 20180503, end: 20180503
  5. VOLUVEN [Suspect]
     Active Substance: HYDROXYETHYL STARCH 130/0.4
     Indication: FLUID REPLACEMENT
     Dosage: 1500 ML, UNK
     Route: 041
     Dates: start: 20180503, end: 20180503
  6. NORMAL SALINE [Concomitant]
     Active Substance: SODIUM CHLORIDE
     Dosage: 100 ML, UNK
     Dates: start: 20180503, end: 20180503
  7. ACD?A SOLUTION [Concomitant]
     Indication: AUTOTRANSFUSION
     Dosage: UNK
     Route: 041
     Dates: start: 20180503, end: 20180503
  8. MAP [Concomitant]
     Indication: AUTOTRANSFUSION
     Dosage: UNK
     Route: 041
     Dates: start: 20180503, end: 20180503

REACTIONS (1)
  - Anaphylactic reaction [Recovered/Resolved]

NARRATIVE: CASE EVENT DATE: 20180503
